FAERS Safety Report 7016045-1 (Version None)
Quarter: 2010Q3

REPORT INFORMATION
  Report Type: 
  Country: None (occurrence: None)
  Receive Date: 20100927
  Receipt Date: 20100917
  Transmission Date: 20110219
  Serious: Yes (Hospitalization)
  Sender: FDA-Public Use
  Company Number: GXKR2010GB10656

PATIENT
  Age: 52 Year
  Sex: Male

DRUGS (6)
  1. TAMSULOSIN (NGX) [Suspect]
     Indication: PROSTATOMEGALY
     Dosage: 400 UG, UNK
     Route: 048
     Dates: start: 20100712, end: 20100831
  2. TAMSULOSIN (NGX) [Suspect]
     Indication: URINARY TRACT INFECTION
  3. CANDESARTAN CILEXETIL [Concomitant]
     Dosage: 32 MG, UNK
     Route: 048
  4. DOXAZOSIN MESYLATE [Concomitant]
     Dosage: 8 MG, UNK
     Route: 048
  5. LANSOPRAZOLE [Concomitant]
     Dosage: 30 MG, UNK
     Route: 048
  6. MOXONIDINE [Concomitant]
     Dosage: 200 UG, UNK
     Route: 048

REACTIONS (4)
  - GINGIVAL BLEEDING [None]
  - IDIOPATHIC THROMBOCYTOPENIC PURPURA [None]
  - PLATELET COUNT DECREASED [None]
  - RASH [None]
